FAERS Safety Report 4730203-8 (Version None)
Quarter: 2005Q3

REPORT INFORMATION
  Report Type: 
  Country: None (occurrence: None)
  Receive Date: 20050801
  Receipt Date: 20050722
  Transmission Date: 20060218
  Serious: Yes (Hospitalization)
  Sender: FDA-Public Use
  Company Number: 408611

PATIENT
  Age: 83 Year
  Sex: Male

DRUGS (10)
  1. ARTIST [Suspect]
     Dosage: 2.5MG PER DAY
     Route: 048
     Dates: start: 20050402, end: 20050610
  2. PANALDINE [Suspect]
     Dosage: 200MG PER DAY
     Route: 048
     Dates: start: 20050329, end: 20050610
  3. SIGMART [Suspect]
     Dosage: 15MG THREE TIMES PER DAY
     Route: 048
     Dates: start: 20050330, end: 20050610
  4. ALDACTONE [Concomitant]
     Route: 065
     Dates: start: 20050402, end: 20050610
  5. BLOPRESS [Concomitant]
     Route: 065
     Dates: start: 20050329, end: 20050610
  6. GASTROM [Concomitant]
     Route: 065
     Dates: start: 20021220, end: 20050610
  7. TAGAMET [Concomitant]
     Route: 065
     Dates: start: 20021220, end: 20050610
  8. URSODIOL [Concomitant]
     Route: 065
     Dates: start: 20041206, end: 20050610
  9. GLAKAY [Concomitant]
     Route: 065
     Dates: start: 20041206, end: 20050610
  10. ASPIRIN [Concomitant]
     Route: 065
     Dates: start: 20050329, end: 20050610

REACTIONS (5)
  - ANOREXIA [None]
  - HEPATIC FUNCTION ABNORMAL [None]
  - HEPATITIS CHOLESTATIC [None]
  - JAUNDICE [None]
  - MALAISE [None]
